FAERS Safety Report 25272303 (Version 1)
Quarter: 2025Q2

REPORT INFORMATION
  Report Type: Report from Study
  Country: GB (occurrence: GB)
  Receive Date: 20250506
  Receipt Date: 20250506
  Transmission Date: 20250717
  Serious: Yes (Hospitalization)
  Sender: AMGEN
  Company Number: GB-AMGEN-GBRSL2025067468

PATIENT
  Age: 74 Year
  Sex: Female

DRUGS (1)
  1. REPATHA [Suspect]
     Active Substance: EVOLOCUMAB
     Indication: Type IIa hyperlipidaemia
     Dosage: 140 MILLIGRAM, Q4WK/EVERY 28 DAYS
     Route: 065
     Dates: start: 20250416, end: 2025

REACTIONS (12)
  - Fibromyalgia [Recovering/Resolving]
  - Arthritis [Unknown]
  - Depression [Recovering/Resolving]
  - Sciatica [Recovering/Resolving]
  - Restlessness [Unknown]
  - Cardiac disorder [Recovering/Resolving]
  - Dyspnoea [Recovering/Resolving]
  - Malaise [Recovering/Resolving]
  - Asthenia [Recovering/Resolving]
  - Post-acute COVID-19 syndrome [Recovering/Resolving]
  - Skin infection [Recovering/Resolving]
  - Off label use [Unknown]

NARRATIVE: CASE EVENT DATE: 20250401
